APPROVED DRUG PRODUCT: FENOLDOPAM MESYLATE
Active Ingredient: FENOLDOPAM MESYLATE
Strength: EQ 10MG BASE/ML
Dosage Form/Route: INJECTABLE;INJECTION
Application: A076656 | Product #001
Applicant: LUITPOLD PHARMACEUTICALS INC
Approved: Dec 1, 2003 | RLD: No | RS: No | Type: DISCN